FAERS Safety Report 6407969-4 (Version None)
Quarter: 2009Q4

REPORT INFORMATION
  Report Type: 
  Country: None (occurrence: None)
  Receive Date: 20091016
  Receipt Date: 20091009
  Transmission Date: 20100525
  Serious: Yes (Other)
  Sender: FDA-Public Use
  Company Number: DSA_33997_2009

PATIENT
  Sex: Male

DRUGS (9)
  1. XENAZINE [Suspect]
     Indication: HUNTINGTON'S CHOREA
     Dosage: 12.5 MG QID, 12.5 MG IN AM AND NOON, 25 MG LATE AFTERNOON, 25 MG AT BEDTIME DF
     Dates: start: 20090501, end: 20090501
  2. XENAZINE [Suspect]
     Indication: HUNTINGTON'S CHOREA
     Dosage: 12.5 MG QID, 12.5 MG IN AM AND NOON, 25 MG LATE AFTERNOON, 25 MG AT BEDTIME DF
     Dates: start: 20090501, end: 20090601
  3. XENAZINE [Suspect]
     Indication: HUNTINGTON'S CHOREA
     Dosage: 12.5 MG QID, 12.5 MG IN AM AND NOON, 25 MG LATE AFTERNOON, 25 MG AT BEDTIME DF
     Dates: start: 20090604, end: 20090706
  4. TRIAMCINOLONE [Concomitant]
  5. GLYCERIN [Concomitant]
  6. COLACE [Concomitant]
  7. POLYETHYLENE GLYCOL [Concomitant]
  8. ACETAMINOPHEN [Concomitant]
  9. HALDOL [Concomitant]

REACTIONS (8)
  - AGGRESSION [None]
  - AGITATION [None]
  - ANGER [None]
  - CONDITION AGGRAVATED [None]
  - HUNTINGTON'S CHOREA [None]
  - MOOD ALTERED [None]
  - SUICIDAL IDEATION [None]
  - VERBAL ABUSE [None]
